FAERS Safety Report 15751080 (Version 1)
Quarter: 2018Q4

REPORT INFORMATION
  Report Type: Spontaneous
  Country: US (occurrence: US)
  Receive Date: 20181221
  Receipt Date: 20181221
  Transmission Date: 20190205
  Serious: No
  Sender: FDA-Public Use
  Company Number: US-THERAPEUTICSMD-2018TMD00241

PATIENT
  Age: 80 Year
  Sex: Female
  Weight: 70.75 kg

DRUGS (1)
  1. IMVEXXY [Suspect]
     Active Substance: ESTRADIOL
     Indication: OESTROGEN REPLACEMENT THERAPY
     Dosage: 10 ?G, 1X/DAY AT NIGHT, THEN LAYS DOWN RIGHT AWAY
     Route: 067
     Dates: start: 20181001

REACTIONS (4)
  - Lip swelling [Not Recovered/Not Resolved]
  - Off label use [Not Recovered/Not Resolved]
  - Lip pain [Not Recovered/Not Resolved]
  - Paraesthesia oral [Not Recovered/Not Resolved]

NARRATIVE: CASE EVENT DATE: 201810
